FAERS Safety Report 18178502 (Version 1)
Quarter: 2020Q3

REPORT INFORMATION
  Report Type: Spontaneous
  Country: US (occurrence: US)
  Receive Date: 20200820
  Receipt Date: 20200820
  Transmission Date: 20201103
  Serious: No
  Sender: FDA-Public Use
  Company Number: US-JNJFOC-20200829098

PATIENT
  Age: 76 Year
  Sex: Male
  Weight: 79 kg

DRUGS (2)
  1. IBUPROFEN. [Concomitant]
     Active Substance: IBUPROFEN
  2. XARELTO [Suspect]
     Active Substance: RIVAROXABAN
     Indication: THROMBOSIS
     Route: 048
     Dates: start: 20200811

REACTIONS (1)
  - Expired product administered [Unknown]

NARRATIVE: CASE EVENT DATE: 20200811
